FAERS Safety Report 20557868 (Version 1)
Quarter: 2022Q1

REPORT INFORMATION
  Report Type: Spontaneous
  Country: CN (occurrence: CN)
  Receive Date: 20220307
  Receipt Date: 20220307
  Transmission Date: 20220423
  Serious: Yes (Other)
  Sender: FDA-Public Use
  Company Number: CN-BAXTER-2022BAX004470

PATIENT
  Age: 93 Year
  Sex: Female

DRUGS (4)
  1. MANNITOL [Suspect]
     Active Substance: MANNITOL
     Indication: Diuretic therapy
     Route: 041
     Dates: start: 20220122, end: 20220126
  2. MANNITOL [Suspect]
     Active Substance: MANNITOL
     Indication: Intracranial pressure increased
     Dosage: DOSE REDUCED
     Route: 041
     Dates: start: 20220126
  3. MANNITOL [Suspect]
     Active Substance: MANNITOL
     Indication: Cerebral infarction
  4. MANNITOL [Suspect]
     Active Substance: MANNITOL
     Indication: Brain oedema

REACTIONS (2)
  - Renal injury [Unknown]
  - Blood creatinine increased [Recovered/Resolved]

NARRATIVE: CASE EVENT DATE: 20220126
